FAERS Safety Report 18013911 (Version 1)
Quarter: 2020Q3

REPORT INFORMATION
  Report Type: Spontaneous
  Country: US (occurrence: US)
  Receive Date: 20200712
  Receipt Date: 20200712
  Transmission Date: 20201103
  Serious: No
  Sender: FDA-Public Use
  Company Number: None

PATIENT
  Age: 38 Year
  Sex: Female
  Weight: 108 kg

DRUGS (1)
  1. BUPRENORPHINE/NALOXONE [Suspect]
     Active Substance: BUPRENORPHINE\NALOXONE
     Indication: DRUG DEPENDENCE
     Dosage: ?          QUANTITY:0.5 FILM;?
     Route: 060
     Dates: start: 20180530

REACTIONS (2)
  - Dyspnoea [None]
  - Burning sensation [None]

NARRATIVE: CASE EVENT DATE: 20200711
